FAERS Safety Report 12439881 (Version 1)
Quarter: 2016Q2

REPORT INFORMATION
  Report Type: Spontaneous
  Country: IT (occurrence: DE)
  Receive Date: 20160606
  Receipt Date: 20160606
  Transmission Date: 20160815
  Serious: Yes (Other)
  Sender: FDA-Public Use
  Company Number: DE-FRI-1000085114

PATIENT
  Age: 53 Year
  Sex: Female

DRUGS (1)
  1. MONUROL [Suspect]
     Active Substance: FOSFOMYCIN TROMETHAMINE
     Indication: CYSTITIS
     Dosage: 3000 MG
     Route: 048
     Dates: start: 20160513, end: 20160513

REACTIONS (3)
  - Faeces soft [Not Recovered/Not Resolved]
  - Hypersensitivity [Recovering/Resolving]
  - Haematoma [Recovering/Resolving]

NARRATIVE: CASE EVENT DATE: 20160514
